FAERS Safety Report 17886399 (Version 1)
Quarter: 2020Q2

REPORT INFORMATION
  Report Type: Spontaneous
  Country: FR (occurrence: FR)
  Receive Date: 20200611
  Receipt Date: 20200611
  Transmission Date: 20200714
  Serious: Yes (Hospitalization)
  Sender: FDA-Public Use
  Company Number: FR-JNJFOC-20200603330

PATIENT
  Age: 60 Year
  Sex: Female
  Weight: 72.8 kg

DRUGS (6)
  1. HALDOL [Suspect]
     Active Substance: HALOPERIDOL
     Indication: PSYCHOTIC DISORDER
     Route: 048
     Dates: end: 20200502
  2. NEULEPTIL                          /00038401/ [Suspect]
     Active Substance: PERICIAZINE
     Indication: PSYCHOTIC DISORDER
     Route: 048
     Dates: start: 20200504
  3. DEPAKINE                           /00228501/ [Suspect]
     Active Substance: VALPROIC ACID
     Indication: EPILEPSY
     Route: 048
     Dates: end: 20200507
  4. IMOVANE [Suspect]
     Active Substance: ZOPICLONE
     Indication: INSOMNIA
     Route: 048
     Dates: start: 20200502
  5. URBANYL [Suspect]
     Active Substance: CLOBAZAM
     Indication: EPILEPSY
     Route: 048
  6. ZYPREXA [Suspect]
     Active Substance: OLANZAPINE
     Indication: PSYCHOTIC DISORDER
     Route: 048
     Dates: end: 20200504

REACTIONS (2)
  - Cognitive disorder [Recovering/Resolving]
  - Coma [Recovering/Resolving]

NARRATIVE: CASE EVENT DATE: 20200423
